FAERS Safety Report 8389868-4 (Version None)
Quarter: 2012Q2

REPORT INFORMATION
  Report Type: 
  Country: None (occurrence: None)
  Receive Date: 20120521
  Receipt Date: 20120511
  Transmission Date: 20120825
  Serious: Yes (Other)
  Sender: FDA-Public Use
  Company Number: ACO_30361_2012

PATIENT
  Age: 67 Year
  Sex: Female
  Weight: 68.9 kg

DRUGS (6)
  1. PRAVASTATIN [Concomitant]
  2. TENORMIN [Concomitant]
  3. AMITRIPTYLINE HCL [Suspect]
  4. AMPYRA [Suspect]
     Indication: GAIT DISTURBANCE
     Dosage: 10 MG, Q, 12 HRS, ORAL
     Route: 048
     Dates: start: 20100401
  5. PERCOCET [Concomitant]
  6. VALIUM [Concomitant]

REACTIONS (3)
  - FALL [None]
  - WRIST FRACTURE [None]
  - DRUG INEFFECTIVE [None]
